FAERS Safety Report 6109609-0 (Version None)
Quarter: 2009Q1

REPORT INFORMATION
  Report Type: 
  Country: None (occurrence: None)
  Receive Date: 20090306
  Receipt Date: 20090306
  Transmission Date: 20090719
  Serious: Yes (Other)
  Sender: FDA-Public Use
  Company Number: None

PATIENT
  Age: 60 Year
  Sex: Female
  Weight: 91.6266 kg

DRUGS (2)
  1. ARIMIDEX [Suspect]
     Dosage: 1 MG ONE A DAY PO
     Route: 048
     Dates: start: 20070501, end: 20080315
  2. AROMASIN [Suspect]
     Dosage: 25 MG ONCE A DAY PO
     Route: 048
     Dates: start: 20080715, end: 20090305

REACTIONS (4)
  - ARTHRALGIA [None]
  - MYALGIA [None]
  - NERVE INJURY [None]
  - NEUROPATHY PERIPHERAL [None]
